FAERS Safety Report 19745329 (Version 2)
Quarter: 2021Q3

REPORT INFORMATION
  Report Type: Report from Study
  Country: None (occurrence: US)
  Receive Date: 20210825
  Receipt Date: 20210903
  Transmission Date: 20211014
  Serious: Yes (Hospitalization, Other)
  Sender: FDA-Public Use
  Company Number: US-ABBVIE-21K-163-4053036-00

PATIENT
  Age: 69 Year
  Sex: Female
  Weight: 92.62 kg

DRUGS (5)
  1. SKYRIZI [Suspect]
     Active Substance: RISANKIZUMAB-RZAA
     Indication: PSORIASIS
     Route: 058
     Dates: start: 202103, end: 202103
  2. SKYRIZI [Suspect]
     Active Substance: RISANKIZUMAB-RZAA
     Route: 058
     Dates: start: 202104, end: 202104
  3. BABY ASPIRIN [Concomitant]
     Active Substance: ASPIRIN
     Indication: ANTICOAGULANT THERAPY
  4. SKYRIZI [Suspect]
     Active Substance: RISANKIZUMAB-RZAA
     Route: 058
     Dates: start: 202104
  5. BRILINTA [Concomitant]
     Active Substance: TICAGRELOR
     Indication: ANTICOAGULANT THERAPY

REACTIONS (1)
  - Arterial occlusive disease [Recovered/Resolved]

NARRATIVE: CASE EVENT DATE: 20210813
